FAERS Safety Report 9644453 (Version 2)
Quarter: 2013Q4

REPORT INFORMATION
  Report Type: Spontaneous
  Country: US (occurrence: US)
  Receive Date: 20131025
  Receipt Date: 20131220
  Transmission Date: 20140711
  Serious: Yes (Hospitalization)
  Sender: FDA-Public Use
  Company Number: US-ASTRAZENECA-2013SE77082

PATIENT
  Age: 81 Year
  Sex: Female

DRUGS (2)
  1. SYMBICORT [Suspect]
     Dosage: 160-4.5 MCG TWO PUFFS TWO TIMES A DAY
     Route: 055
  2. ADVAIR [Concomitant]

REACTIONS (2)
  - Fall [Unknown]
  - Upper limb fracture [Unknown]
